FAERS Safety Report 5737043-1 (Version None)
Quarter: 2008Q2

REPORT INFORMATION
  Report Type: 
  Country: None (occurrence: None)
  Receive Date: 20080512
  Receipt Date: 20080512
  Transmission Date: 20081010
  Serious: No
  Sender: FDA-Public Use
  Company Number: None

PATIENT
  Age: 43 Year
  Sex: Female

DRUGS (1)
  1. LEVAQUIN [Suspect]
     Indication: PNEUMONIA
     Dosage: 750MG IV
     Route: 042
     Dates: start: 20080324, end: 20080326

REACTIONS (4)
  - FEELING HOT [None]
  - INFUSION SITE REACTION [None]
  - PAIN IN EXTREMITY [None]
  - RASH [None]
